FAERS Safety Report 25637714 (Version 1)
Quarter: 2025Q3

REPORT INFORMATION
  Report Type: Report from Study
  Country: US (occurrence: US)
  Receive Date: 20250804
  Receipt Date: 20250804
  Transmission Date: 20251021
  Serious: Yes (Other)
  Sender: RECORDATI
  Company Number: US-ORPHANEU-2025002887

PATIENT
  Sex: Female
  Weight: 63.492 kg

DRUGS (6)
  1. ISTURISA [Suspect]
     Active Substance: OSILODROSTAT PHOSPHATE
     Indication: Cushing^s syndrome
     Dosage: 1 MG, BID
     Route: 048
     Dates: start: 20250328, end: 2025
  2. ISTURISA [Suspect]
     Active Substance: OSILODROSTAT PHOSPHATE
     Dosage: 1 MG, BID
     Route: 048
     Dates: start: 2025
  3. OMEPRAZOLE [Concomitant]
     Active Substance: OMEPRAZOLE
     Indication: Product used for unknown indication
     Dosage: 20 MG, QD ( CAPSULE DELAYED RELEASE)
     Route: 048
     Dates: start: 20240320
  4. TYLENOL EXTRA STRENGTH [Concomitant]
     Active Substance: ACETAMINOPHEN
     Indication: Product used for unknown indication
     Dosage: 1000 MG, QD (TABLET, HS)
     Route: 048
     Dates: start: 20240320
  5. CYCLOBENZAPRINE HYDROCHLORIDE [Concomitant]
     Active Substance: CYCLOBENZAPRINE HYDROCHLORIDE
     Indication: Product used for unknown indication
     Dosage: 10 MG, QD (HS, 5 MG TABLET)
     Route: 048
     Dates: start: 20240320
  6. Cvs melatonin [Concomitant]
     Indication: Product used for unknown indication
     Dosage: 10 MG, QD (HS, 5 MG CAPSULE)
     Route: 048
     Dates: start: 20240320

REACTIONS (4)
  - Loss of consciousness [Unknown]
  - Pain [Recovered/Resolved]
  - Fatigue [Not Recovered/Not Resolved]
  - Headache [Not Recovered/Not Resolved]

NARRATIVE: CASE EVENT DATE: 20250101
